FAERS Safety Report 7485130-2 (Version None)
Quarter: 2011Q2

REPORT INFORMATION
  Report Type: 
  Country: None (occurrence: None)
  Receive Date: 20110517
  Receipt Date: 20110511
  Transmission Date: 20111010
  Serious: Yes (Disabling, Other)
  Sender: FDA-Public Use
  Company Number: US-ROCHE-776861

PATIENT
  Age: 31 Year
  Sex: Male
  Weight: 76.2 kg

DRUGS (9)
  1. KLONOPIN [Suspect]
     Route: 065
  2. ZOLOFT [Suspect]
     Dosage: OVERDOSE
     Route: 048
  3. ZOLOFT [Suspect]
     Dosage: OTHER INDICATION: DEPRESSION, FORM: FILM COATED TABLET
     Route: 048
  4. EFFEXOR [Concomitant]
  5. WELLBUTRIN [Concomitant]
  6. KLONOPIN [Suspect]
     Dosage: OVERDOSE
     Route: 065
  7. SERTRALINE HYDROCHLORIDE [Suspect]
     Route: 048
     Dates: start: 20030101
  8. SERTRALINE HYDROCHLORIDE [Suspect]
     Dosage: INCREASED DOSAGE
     Route: 048
  9. PROZAC [Concomitant]

REACTIONS (17)
  - LOSS OF CONSCIOUSNESS [None]
  - BLOOD TEST ABNORMAL [None]
  - MEMORY IMPAIRMENT [None]
  - ROAD TRAFFIC ACCIDENT [None]
  - APPARENT DEATH [None]
  - NO ADVERSE EVENT [None]
  - HYPOXIA [None]
  - DRUG DEPENDENCE [None]
  - INJURY [None]
  - FATIGUE [None]
  - OVERDOSE [None]
  - EPILEPSY [None]
  - DISABILITY [None]
  - SPEECH DISORDER [None]
  - PERSONALITY CHANGE DUE TO A GENERAL MEDICAL CONDITION [None]
  - PARAESTHESIA [None]
  - DRUG HYPERSENSITIVITY [None]
